FAERS Safety Report 7051272-9 (Version None)
Quarter: 2010Q4

REPORT INFORMATION
  Report Type: 
  Country: None (occurrence: None)
  Receive Date: 20101019
  Receipt Date: 20101012
  Transmission Date: 20110411
  Serious: Yes (Life-Threatening)
  Sender: FDA-Public Use
  Company Number: MX-NOVOPROD-315378

PATIENT
  Age: 60 Year
  Sex: Male
  Weight: 64 kg

DRUGS (2)
  1. LEVEMIR [Suspect]
     Indication: TYPE 2 DIABETES MELLITUS
     Dosage: 18 UL, QD
     Route: 058
     Dates: start: 20071007
  2. NOVORAPID FLEXPEN [Concomitant]
     Indication: PRODUCT USED FOR UNKNOWN INDICATION
     Dosage: 12 UL, QD
     Route: 058
     Dates: start: 20071126

REACTIONS (1)
  - MALIGNANT NEOPLASM OF AMPULLA OF VATER [None]
